FAERS Safety Report 4515347-8 (Version None)
Quarter: 2004Q4

REPORT INFORMATION
  Report Type: 
  Country: None (occurrence: None)
  Receive Date: 20041029
  Receipt Date: 20040907
  Transmission Date: 20050328
  Serious: No
  Sender: FDA-Public Use
  Company Number: 200416754US

PATIENT
  Sex: Female

DRUGS (3)
  1. KETEK [Suspect]
     Dates: start: 20040903
  2. PREDNISONE [Suspect]
  3. XOPENEX [Suspect]

REACTIONS (1)
  - PRURITUS [None]
